FAERS Safety Report 20822855 (Version 1)
Quarter: 2022Q2

REPORT INFORMATION
  Report Type: Other
  Country: IL (occurrence: IL)
  Receive Date: 20220512
  Receipt Date: 20220512
  Transmission Date: 20220721
  Serious: Yes (Death, Other)
  Sender: FDA-Public Use
  Company Number: IL-JAZZ-2018-IL-019277

PATIENT
  Age: 32 Year
  Sex: Male

DRUGS (1)
  1. DEFITELIO [Suspect]
     Active Substance: DEFIBROTIDE SODIUM
     Indication: Hepatic vein occlusion
     Dosage: UNK
     Route: 040

REACTIONS (2)
  - Stem cell transplant [Fatal]
  - Sepsis [Fatal]
